FAERS Safety Report 8418082-9 (Version None)
Quarter: 2012Q2

REPORT INFORMATION
  Report Type: 
  Country: None (occurrence: None)
  Receive Date: 20120604
  Receipt Date: 20120604
  Transmission Date: 20120825
  Serious: Yes (Other)
  Sender: FDA-Public Use
  Company Number: None

PATIENT
  Sex: Female

DRUGS (1)
  1. NORDITROPIN FLEXPRO [Suspect]
     Dosage: 0.95 MG DAILY SUB CUTANEOUS
     Route: 058
     Dates: start: 20120223, end: 20120530

REACTIONS (2)
  - HORMONE LEVEL ABNORMAL [None]
  - BREAST ENLARGEMENT [None]
